FAERS Safety Report 9571458 (Version 1)
Quarter: 2013Q4

REPORT INFORMATION
  Report Type: Spontaneous
  Country: JP (occurrence: JP)
  Receive Date: 20131001
  Receipt Date: 20131001
  Transmission Date: 20140711
  Serious: Yes (Hospitalization)
  Sender: FDA-Public Use
  Company Number: JP-RANBAXY-2013R1-73544

PATIENT
  Age: 37 Year
  Sex: Male

DRUGS (1)
  1. PENTAZOCINE [Suspect]
     Indication: PAIN
     Dosage: 15 MG AT 07:30
     Route: 030

REACTIONS (1)
  - Cerebral infarction [Recovering/Resolving]
